FAERS Safety Report 7132916-X (Version None)
Quarter: 2010Q4

REPORT INFORMATION
  Report Type: 
  Country: None (occurrence: None)
  Receive Date: 20101202
  Receipt Date: 20101119
  Transmission Date: 20110411
  Serious: Yes (Other)
  Sender: FDA-Public Use
  Company Number: US-PFIZER INC-HQWYE230001SEP05

PATIENT
  Sex: Female

DRUGS (5)
  1. PREMARIN [Suspect]
     Indication: HORMONE REPLACEMENT THERAPY
     Dosage: UNK
  2. PROVERA [Suspect]
     Dosage: UNK
  3. ESTRATAB [Suspect]
  4. OGEN [Suspect]
  5. ESTRACE [Suspect]

REACTIONS (1)
  - BREAST CANCER [None]
